FAERS Safety Report 9169631 (Version 1)
Quarter: 2013Q1

REPORT INFORMATION
  Report Type: Spontaneous
  Country: US (occurrence: US)
  Receive Date: 20130318
  Receipt Date: 20130318
  Transmission Date: 20140127
  Serious: Yes (Death, Other)
  Sender: FDA-Public Use
  Company Number: US-PFIZER INC-2013085864

PATIENT
  Age: 65 Year
  Sex: Female

DRUGS (2)
  1. TIGECYCLINE [Suspect]
     Indication: SEPSIS
     Dosage: UNK
  2. TIGECYCLINE [Suspect]
     Indication: PNEUMONIA

REACTIONS (1)
  - Pancreatitis [Fatal]
